APPROVED DRUG PRODUCT: ISOVUE-M 200
Active Ingredient: IOPAMIDOL
Strength: 41%
Dosage Form/Route: INJECTABLE;INJECTION
Application: N018735 | Product #001 | TE Code: AP1
Applicant: BRACCO DIAGNOSTICS INC
Approved: Dec 31, 1985 | RLD: Yes | RS: Yes | Type: RX